FAERS Safety Report 8382661-8 (Version None)
Quarter: 2012Q1

REPORT INFORMATION
  Report Type: 
  Country: None (occurrence: None)
  Receive Date: 20120323
  Receipt Date: 20110909
  Transmission Date: 20120608
  Serious: Yes (Hospitalization)
  Sender: FDA-Public Use
  Company Number: 163-21880-11051562

PATIENT
  Age: 73 Year
  Sex: Male

DRUGS (9)
  1. FISH OIL (FISH OIL) [Concomitant]
  2. MELPHALAN HYDROCHLORIDE [Concomitant]
  3. PREDNISONE TAB [Concomitant]
  4. FLECAINIDE ACETATE [Concomitant]
  5. LISINOPRIL [Concomitant]
  6. REVLIMID [Suspect]
     Indication: MULTIPLE MYELOMA
     Dosage: 10 MG, X 21 DAYS, PO  ; 25 MG, X21 DAYS, PO
     Route: 048
     Dates: start: 20110203, end: 20110101
  7. REVLIMID [Suspect]
     Indication: MULTIPLE MYELOMA
     Dosage: 10 MG, X 21 DAYS, PO  ; 25 MG, X21 DAYS, PO
     Route: 048
     Dates: start: 20110501
  8. ASPIRIN [Concomitant]
  9. ANTIBIOTICS (ANTIBIOTICS) [Concomitant]

REACTIONS (5)
  - RED BLOOD CELL COUNT DECREASED [None]
  - LOBAR PNEUMONIA [None]
  - PLATELET COUNT DECREASED [None]
  - WHITE BLOOD CELL COUNT DECREASED [None]
  - FEBRILE NEUTROPENIA [None]
